FAERS Safety Report 19951822 (Version 3)
Quarter: 2023Q1

REPORT INFORMATION
  Report Type: Spontaneous
  Country: DE (occurrence: DE)
  Receive Date: 20211013
  Receipt Date: 20230203
  Transmission Date: 20230418
  Serious: Yes (Hospitalization)
  Sender: FDA-Public Use
  Company Number: DE-ADRED-06668-02

PATIENT
  Age: 33 Year
  Sex: Female
  Weight: 50 kg

DRUGS (11)
  1. IRINOTECAN [Suspect]
     Active Substance: IRINOTECAN
     Indication: Product used for unknown indication
     Dosage: BY SCHEDULE, SOLUTION INJECTION /INFUSION
     Route: 042
  2. FLUOROURACIL [Suspect]
     Active Substance: FLUOROURACIL
     Indication: Product used for unknown indication
     Dosage: BY SCHEDULE, SOLUTION INJECTION /INFUSION
     Route: 042
  3. BUPRENORPHINE [Concomitant]
     Active Substance: BUPRENORPHINE
     Indication: Product used for unknown indication
     Dosage: 0.2 MG, REQUIREMENT,
     Route: 060
  4. ELECTROLYTES NOS\MINERALS [Concomitant]
     Active Substance: ELECTROLYTES NOS\MINERALS
     Indication: Product used for unknown indication
     Dosage: BY SCHEDULE
     Route: 042
  5. METAMIZOLE [Concomitant]
     Active Substance: METAMIZOLE
     Indication: Product used for unknown indication
     Dosage: 500 MILLIGRAM, REQUIREMENT
     Route: 048
  6. DEXAMETHASONE [Concomitant]
     Active Substance: DEXAMETHASONE
     Indication: Product used for unknown indication
     Dosage: 8 MILLIGRAM, QD
     Route: 048
  7. LEUCOVORIN [Concomitant]
     Active Substance: LEUCOVORIN
     Indication: Product used for unknown indication
     Dosage: BY SCHEDULE, SOLUTION INJECTION /INFUSION
     Route: 042
  8. LEVOMEPROMAZINE [Concomitant]
     Active Substance: LEVOMEPROMAZINE
     Indication: Product used for unknown indication
     Dosage: 40 MILLIGRAM, REQUIREMENT
     Route: 048
  9. NALOXEGOL [Concomitant]
     Active Substance: NALOXEGOL
     Indication: Product used for unknown indication
     Dosage: 25 MILLIGRAM, QD
     Route: 048
  10. RINGER-ACETAT [Concomitant]
     Indication: Product used for unknown indication
     Dosage: 1-0-0-0, INJECTION SOLUTION/INFUSION SOLUTION
     Route: 042
  11. CERNEVIT [Concomitant]
     Active Substance: VITAMINS
     Dosage: UNK
     Route: 042

REACTIONS (2)
  - Diarrhoea [Recovering/Resolving]
  - Abdominal pain [Recovering/Resolving]
